FAERS Safety Report 7776552 (Version 7)
Quarter: 2014Q1

REPORT INFORMATION
  Report Type: Spontaneous
  Country: US (occurrence: US)
  Receive Date: 20110127
  Receipt Date: 20140203
  Transmission Date: 20141002
  Serious: Yes (Death, Hospitalization)
  Sender: FDA-Public Use
  Company Number: US-B.I. PHARMACEUTICALS,INC./RIDGEFIELD-2011-BP-01546BP

PATIENT
  Age: 81 Year
  Sex: Female
  Weight: 61.23 kg

DRUGS (13)
  1. PRADAXA [Suspect]
     Indication: ATRIAL FIBRILLATION
     Dosage: 300 MG
     Route: 048
     Dates: start: 20101201, end: 20101215
  2. ADVAIR [Concomitant]
     Indication: CHRONIC OBSTRUCTIVE PULMONARY DISEASE
     Route: 055
  3. ALBUTEROL [Concomitant]
     Indication: CHRONIC OBSTRUCTIVE PULMONARY DISEASE
  4. FUROSEMIDE [Concomitant]
     Dosage: 80 MG
     Route: 048
  5. DILTIAZEM CD [Concomitant]
     Dosage: 360 MG
     Route: 048
     Dates: start: 201002, end: 201012
  6. NABUMETONE [Concomitant]
     Dosage: 750 MG
     Route: 048
  7. SPIRONOLACTONE [Concomitant]
     Dates: start: 201001, end: 201012
  8. OMEPRAZOLE [Concomitant]
  9. TRIAMTERENE [Concomitant]
  10. PRO-AIR [Concomitant]
  11. HYDROCODONE-ACETAMINOPHEN [Concomitant]
  12. OXYGEN [Concomitant]
  13. ALENDRONATE [Concomitant]
     Dosage: 10 MG
     Route: 048

REACTIONS (6)
  - Acute respiratory failure [Fatal]
  - Gastrointestinal haemorrhage [Fatal]
  - Haemorrhagic anaemia [Unknown]
  - Fall [Unknown]
  - Haemorrhagic stroke [Unknown]
  - Cerebral haemorrhage [Unknown]
